FAERS Safety Report 9199017 (Version 2)
Quarter: 2013Q2

REPORT INFORMATION
  Report Type: Spontaneous
  Country: US (occurrence: None)
  Receive Date: 20130325
  Receipt Date: 20130409
  Transmission Date: 20140414
  Serious: No
  Sender: FDA-Public Use
  Company Number: 2013US-004597

PATIENT
  Age: 64 Year
  Sex: Male
  Weight: 79 kg

DRUGS (12)
  1. OMONTYS (PEGINESATIDE) SOLUTION FOR INJECTION [Suspect]
     Indication: NEPHROGENIC ANAEMIA
     Route: 042
     Dates: start: 201301, end: 201301
  2. EPOGEN (EPOETIN ALFA) [Concomitant]
  3. ALPRAZOLAM (ALPRAZOLAM) [Concomitant]
  4. HYDROCODONE( HYDROCODONE) [Concomitant]
  5. COUMADIN (WARFARIN SODIUM) [Concomitant]
  6. ASPIRIN (ACETYLSALICYLIC ACID) [Concomitant]
  7. LISINOPRIL (LISINOPRIL) [Concomitant]
  8. PREVACID (LANSOPRAZOLE) [Concomitant]
  9. PROMETHAZINE (PROMETHAZINE) [Concomitant]
  10. NEPHROCAPS [Suspect]
  11. SOTALOL [Concomitant]
  12. RENVELA (SEVELAMER CARBONATE) [Concomitant]

REACTIONS (2)
  - Nausea [None]
  - Product quality issue [None]
